FAERS Safety Report 9055981 (Version 4)
Quarter: 2013Q2

REPORT INFORMATION
  Report Type: Spontaneous
  Country: GR (occurrence: GR)
  Receive Date: 20130205
  Receipt Date: 20130410
  Transmission Date: 20140414
  Serious: Yes (Hospitalization, Other)
  Sender: FDA-Public Use
  Company Number: PHHY2013GR009444

PATIENT
  Age: 76 Year
  Sex: Male

DRUGS (5)
  1. EXJADE [Suspect]
     Indication: MYELOFIBROSIS
     Dosage: 1500 MGX1
     Dates: start: 20121222, end: 20130103
  2. EXJADE [Interacting]
     Dosage: 500 MG, QD
  3. DANATROL [Interacting]
     Indication: BRONCHITIS
     Dosage: 1 DF, DAILY
  4. MACROLIDES [Concomitant]
  5. GLUCOPHAGE [Concomitant]
     Indication: DIABETES MELLITUS
     Dosage: 2 DF, PER DAY

REACTIONS (10)
  - Lung infection [Unknown]
  - Herpes zoster [Recovered/Resolved]
  - Rash [Recovered/Resolved]
  - Blister [Recovered/Resolved]
  - Influenza [Unknown]
  - Gamma-glutamyltransferase increased [Unknown]
  - Bronchitis [Recovering/Resolving]
  - Hepatic enzyme increased [Recovering/Resolving]
  - Serum ferritin increased [Unknown]
  - Drug interaction [Unknown]
